FAERS Safety Report 8055021-7 (Version None)
Quarter: 2012Q1

REPORT INFORMATION
  Report Type: 
  Country: None (occurrence: None)
  Receive Date: 20120119
  Receipt Date: 20120113
  Transmission Date: 20120608
  Serious: Yes (Hospitalization, Other)
  Sender: FDA-Public Use
  Company Number: FR-PFIZER INC-2012010077

PATIENT
  Age: 63 Year
  Sex: Female

DRUGS (10)
  1. ROCEPHIN [Concomitant]
     Indication: UPPER RESPIRATORY TRACT INFECTION
     Dosage: UNK, FOR 9 DAYS
     Route: 030
     Dates: start: 20111221, end: 20111229
  2. IVABRADINE [Concomitant]
     Dosage: 10 MG, 1X/DAY
     Route: 048
  3. PREVISCAN [Concomitant]
     Dosage: 20 MG, AS NEEDED
     Route: 048
     Dates: start: 20000101
  4. LASIX [Concomitant]
     Dosage: 40 MG, 1X/DAY
     Route: 048
  5. ENALAPRIL MALEATE [Concomitant]
     Dosage: 30 MG, 1X/DAY
     Route: 048
  6. PANTOPRAZOLE SODIUM [Concomitant]
     Dosage: 20 MG, 1X/DAY
     Route: 048
  7. SOLU-MEDROL [Suspect]
     Indication: UPPER RESPIRATORY TRACT INFECTION
     Dosage: 40 MG, 1X/DAY
     Route: 042
     Dates: start: 20111221, end: 20111225
  8. ATORVASTATIN CALCIUM [Concomitant]
     Dosage: 20 MG, 1X/DAY
     Route: 048
  9. PREDNISOLONE [Suspect]
     Indication: UPPER RESPIRATORY TRACT INFECTION
     Dosage: 40 MG, 1X/DAY
     Route: 048
     Dates: start: 20111226, end: 20111229
  10. DIGOXIN [Concomitant]
     Dosage: 0.125 MG, 1X/DAY
     Route: 048

REACTIONS (4)
  - DIABETES MELLITUS INADEQUATE CONTROL [None]
  - CEREBRAL ISCHAEMIA [None]
  - VIITH NERVE PARALYSIS [None]
  - RENAL FAILURE [None]
